FAERS Safety Report 9742892 (Version 1)
Quarter: 2013Q4

REPORT INFORMATION
  Report Type: Spontaneous
  Country: US (occurrence: US)
  Receive Date: 20131210
  Receipt Date: 20131210
  Transmission Date: 20140711
  Serious: Yes (Other)
  Sender: FDA-Public Use
  Company Number: PHHY2013US140622

PATIENT
  Age: 66 Year
  Sex: Female

DRUGS (1)
  1. HEPARIN [Suspect]
     Indication: THROMBOSIS PROPHYLAXIS

REACTIONS (7)
  - Sepsis [Unknown]
  - Heparin-induced thrombocytopenia [Unknown]
  - Pyrexia [Unknown]
  - Shock [Unknown]
  - Adrenal haemorrhage [Unknown]
  - Adrenal insufficiency [Unknown]
  - Hyperkalaemia [Unknown]
